FAERS Safety Report 14034868 (Version 1)
Quarter: 2017Q4

REPORT INFORMATION
  Report Type: Spontaneous
  Country: JP (occurrence: JP)
  Receive Date: 20171003
  Receipt Date: 20171003
  Transmission Date: 20180321
  Serious: Yes (Death, Life-Threatening, Hospitalization, Other)
  Sender: FDA-Public Use
  Company Number: JP-009507513-1707JPN000972J

PATIENT
  Age: 69 Year
  Sex: Female

DRUGS (2)
  1. CALONAL [Concomitant]
     Active Substance: ACETAMINOPHEN
     Indication: PAIN MANAGEMENT
     Dosage: UNK
     Route: 048
  2. KEYTRUDA [Suspect]
     Active Substance: PEMBROLIZUMAB
     Indication: SQUAMOUS CELL CARCINOMA OF LUNG
     Dosage: 200 MG, Q3W
     Route: 041
     Dates: start: 20170713, end: 20170713

REACTIONS (4)
  - Pyrexia [Not Recovered/Not Resolved]
  - Cough [Not Recovered/Not Resolved]
  - Interstitial lung disease [Recovering/Resolving]
  - Malignant neoplasm progression [Fatal]

NARRATIVE: CASE EVENT DATE: 20170713
